FAERS Safety Report 4854589-9 (Version None)
Quarter: 2005Q4

REPORT INFORMATION
  Report Type: 
  Country: None (occurrence: None)
  Receive Date: 20051215
  Receipt Date: 20051208
  Transmission Date: 20060501
  Serious: Yes (Death, Hospitalization)
  Sender: FDA-Public Use
  Company Number: CH-BRISTOL-MYERS SQUIBB COMPANY-13209663

PATIENT
  Age: 75 Year
  Sex: Male

DRUGS (9)
  1. GLUCOPHAGE [Suspect]
     Indication: DIABETES MELLITUS NON-INSULIN-DEPENDENT
     Route: 048
     Dates: start: 20050101, end: 20050927
  2. SELIPRAN TABS 20 MG [Suspect]
     Indication: HYPERLIPIDAEMIA
     Route: 048
     Dates: start: 20050101, end: 20050927
  3. LISITRIL [Suspect]
     Indication: ESSENTIAL HYPERTENSION
     Dates: start: 20050101, end: 20050927
  4. EFFEXOR [Suspect]
     Indication: MOOD DISORDER DUE TO A GENERAL MEDICAL CONDITION
     Route: 048
     Dates: start: 20050101, end: 20050927
  5. NEXIUM [Suspect]
     Indication: DYSPEPSIA
     Route: 048
     Dates: start: 20050101, end: 20050627
  6. ASPIRIN [Suspect]
     Indication: THROMBOSIS PROPHYLAXIS
     Route: 048
     Dates: start: 20050101, end: 20051004
  7. TOREM [Concomitant]
     Dates: start: 20050101
  8. PRADIF [Concomitant]
     Dates: start: 20050101
  9. PROSCAR [Concomitant]
     Dates: start: 20050101

REACTIONS (6)
  - ALCOHOLISM [None]
  - DUODENAL ULCER [None]
  - ENCEPHALOPATHY [None]
  - HEPATIC FAILURE [None]
  - HEPATITIS CHOLESTATIC [None]
  - JAUNDICE CHOLESTATIC [None]
